FAERS Safety Report 4358289-3 (Version None)
Quarter: 2004Q2

REPORT INFORMATION
  Report Type: 
  Country: None (occurrence: None)
  Receive Date: 20040511
  Receipt Date: 20040503
  Transmission Date: 20050107
  Serious: Yes (Hospitalization)
  Sender: FDA-Public Use
  Company Number: MK200405-0019-1

PATIENT
  Age: 43 Year
  Sex: Male

DRUGS (4)
  1. METHADOSE METHADONE HY ORAL CONC USP [Suspect]
     Dates: start: 20031226, end: 20040206
  2. KLONOPIN [Suspect]
     Dates: start: 20031226
  3. ELAVIL [Suspect]
     Dates: start: 20031223
  4. OXYCONTIN [Concomitant]

REACTIONS (7)
  - AMNESIA [None]
  - ATTENTION-SEEKING BEHAVIOUR [None]
  - DEPRESSION [None]
  - DRUG ADDICT [None]
  - MOOD SWINGS [None]
  - MULTIPLE DRUG OVERDOSE INTENTIONAL [None]
  - SUICIDE ATTEMPT [None]
